FAERS Safety Report 16556526 (Version 2)
Quarter: 2019Q3

REPORT INFORMATION
  Report Type: Report from Study
  Country: US (occurrence: US)
  Receive Date: 20190711
  Receipt Date: 20190802
  Transmission Date: 20191004
  Serious: Yes (Hospitalization, Other)
  Sender: FDA-Public Use
  Company Number: US-MALLINCKRODT-T201903608

PATIENT
  Sex: Female

DRUGS (12)
  1. CEFTIN [Suspect]
     Active Substance: CEFUROXIME AXETIL
     Indication: URINARY TRACT INFECTION
     Dosage: UNK
     Route: 065
  2. CEFTIN [Suspect]
     Active Substance: CEFUROXIME AXETIL
     Indication: SYSTEMIC INFLAMMATORY RESPONSE SYNDROME
  3. REPOSITORY CORTICOTROPIN INJECTION [Suspect]
     Active Substance: CORTICOTROPIN
     Indication: POLYMYOSITIS
     Dosage: 80 UNITS / 1 ML, 2 TIMES PER WEEK (MONDAY/FRIDAY)
     Route: 058
     Dates: start: 20161101
  4. PLAQUENIL [Concomitant]
     Active Substance: HYDROXYCHLOROQUINE SULFATE
     Indication: PRODUCT USED FOR UNKNOWN INDICATION
     Dosage: UNK
     Route: 065
  5. VITAMIN D [Concomitant]
     Active Substance: VITAMIN D NOS
     Indication: VITAMIN D DECREASED
     Dosage: UNK UNK, WEEKLY
     Route: 065
  6. REPOSITORY CORTICOTROPIN INJECTION [Suspect]
     Active Substance: CORTICOTROPIN
     Dosage: 80 UNITS / 1 ML, ONE TIME WEEKLY (WEDNESDAY)
     Route: 058
     Dates: end: 201906
  7. CELLCEPT [Suspect]
     Active Substance: MYCOPHENOLATE MOFETIL\MYCOPHENOLATE MOFETIL HYDROCHLORIDE
     Indication: PRODUCT USED FOR UNKNOWN INDICATION
     Dosage: 3000 MG, QD
     Route: 065
     Dates: end: 201906
  8. PREDNISONE. [Suspect]
     Active Substance: PREDNISONE
     Indication: PRODUCT USED FOR UNKNOWN INDICATION
     Dosage: 10 MILLIGRAM, UNK
     Route: 065
  9. PREDNISONE. [Suspect]
     Active Substance: PREDNISONE
     Dosage: 5 MILLIGRAM, UNK
     Route: 065
  10. IMURAN [Suspect]
     Active Substance: AZATHIOPRINE
     Indication: PRODUCT USED FOR UNKNOWN INDICATION
     Dosage: UNK
     Route: 065
  11. VANCOMYCIN [Suspect]
     Active Substance: VANCOMYCIN
     Indication: URINARY TRACT INFECTION
     Dosage: UNK
     Route: 065
  12. VANCOMYCIN [Suspect]
     Active Substance: VANCOMYCIN
     Indication: SYSTEMIC INFLAMMATORY RESPONSE SYNDROME

REACTIONS (30)
  - Systemic inflammatory response syndrome [Unknown]
  - Feeling abnormal [Unknown]
  - Carcinoembryonic antigen increased [Unknown]
  - Nerve injury [Unknown]
  - Anxiety [Unknown]
  - Diabetes mellitus [Unknown]
  - Nervousness [Unknown]
  - Polymyositis [Unknown]
  - Diverticulitis [Unknown]
  - Fatigue [Unknown]
  - Nausea [Unknown]
  - Gout [Unknown]
  - Condition aggravated [Unknown]
  - Malaise [Unknown]
  - Sleep disorder [Unknown]
  - Memory impairment [Unknown]
  - Abdominal pain [Unknown]
  - Urinary tract infection [Unknown]
  - Immunodeficiency [Unknown]
  - Carbohydrate antigen 19-9 increased [Unknown]
  - Vomiting [Unknown]
  - Frustration tolerance decreased [Unknown]
  - Drug intolerance [Unknown]
  - Systemic lupus erythematosus [Unknown]
  - Retching [Unknown]
  - Hypotension [Unknown]
  - Therapy cessation [Unknown]
  - Cough [Unknown]
  - Confusional state [Unknown]
  - Therapeutic product effect delayed [Unknown]
